FAERS Safety Report 11068097 (Version 1)
Quarter: 2015Q2

REPORT INFORMATION
  Report Type: Spontaneous
  Country: US (occurrence: None)
  Receive Date: 20150424
  Receipt Date: 20150424
  Transmission Date: 20150821
  Serious: No
  Sender: FDA-Public Use
  Company Number: None

PATIENT
  Age: 19 Year
  Sex: Male
  Weight: 95.26 kg

DRUGS (3)
  1. ADDERALL [Suspect]
     Active Substance: AMPHETAMINE ASPARTATE\AMPHETAMINE SULFATE\DEXTROAMPHETAMINE SACCHARATE\DEXTROAMPHETAMINE SULFATE
     Indication: ATTENTION DEFICIT/HYPERACTIVITY DISORDER
     Dosage: 1 PILL
     Route: 048
  2. MENS ONE-A-DAY MULTIVITAMIN [Concomitant]
  3. FISH OIL OMEGA-3 [Concomitant]

REACTIONS (5)
  - Fatigue [None]
  - Headache [None]
  - Mood swings [None]
  - Feeling abnormal [None]
  - Memory impairment [None]
